FAERS Safety Report 6998784-1 (Version None)
Quarter: 2010Q3

REPORT INFORMATION
  Report Type: 
  Country: None (occurrence: None)
  Receive Date: 20100920
  Receipt Date: 20100506
  Transmission Date: 20110219
  Serious: No
  Sender: FDA-Public Use
  Company Number: US-ASTRAZENECA-2010SE20710

PATIENT
  Age: 17 Year
  Sex: Male
  Weight: 74.8 kg

DRUGS (9)
  1. SEROQUEL XR [Suspect]
     Indication: BIPOLAR DISORDER
     Route: 048
     Dates: start: 20100413, end: 20100420
  2. SEROQUEL XR [Suspect]
     Indication: PARANOIA
     Route: 048
     Dates: start: 20100413, end: 20100420
  3. SEROQUEL XR [Suspect]
     Route: 048
     Dates: start: 20100421, end: 20100426
  4. SEROQUEL XR [Suspect]
     Route: 048
     Dates: start: 20100421, end: 20100426
  5. SEROQUEL XR [Suspect]
     Route: 048
     Dates: start: 20100427, end: 20100429
  6. SEROQUEL XR [Suspect]
     Route: 048
     Dates: start: 20100427, end: 20100429
  7. SEROQUEL XR [Suspect]
     Route: 048
     Dates: start: 20100429
  8. SEROQUEL XR [Suspect]
     Route: 048
     Dates: start: 20100429
  9. ATIVAN [Concomitant]
     Indication: PANIC ATTACK

REACTIONS (3)
  - DRY MOUTH [None]
  - NASAL CONGESTION [None]
  - SOMNOLENCE [None]
